FAERS Safety Report 15689936 (Version 2)
Quarter: 2019Q3

REPORT INFORMATION
  Report Type: Spontaneous
  Country: FR (occurrence: FR)
  Receive Date: 20181205
  Receipt Date: 20190716
  Transmission Date: 20191004
  Serious: Yes (Hospitalization, Other)
  Sender: FDA-Public Use
  Company Number: FR-CELLTRION INC.-2018FR024228

PATIENT

DRUGS (3)
  1. INFLIXIMAB PFIZER (UNKNOWN) [Suspect]
     Active Substance: INFLIXIMAB
     Indication: COLITIS ULCERATIVE
     Dosage: UNK
     Route: 042
     Dates: start: 201012
  2. MERCAPTOPURINE. [Suspect]
     Active Substance: MERCAPTOPURINE
     Dosage: UNKNOWN
     Route: 065
     Dates: start: 200908
  3. MERCAPTOPURINE. [Suspect]
     Active Substance: MERCAPTOPURINE
     Indication: COLITIS ULCERATIVE
     Dosage: UNKNOWN
     Route: 065
     Dates: start: 200908

REACTIONS (8)
  - Rectal stenosis [Unknown]
  - Diarrhoea haemorrhagic [Unknown]
  - Ureteric obstruction [Unknown]
  - General physical health deterioration [Unknown]
  - Drug ineffective [Unknown]
  - Linitis plastica [Unknown]
  - Metastases to rectum [Unknown]
  - Pyrexia [Unknown]
